FAERS Safety Report 19486919 (Version 1)
Quarter: 2021Q3

REPORT INFORMATION
  Report Type: Spontaneous
  Country: US (occurrence: US)
  Receive Date: 20210702
  Receipt Date: 20210702
  Transmission Date: 20211014
  Serious: Yes (Hospitalization)
  Sender: FDA-Public Use
  Company Number: US-OAKRUM PHARMA-2021OAK00006

PATIENT
  Age: 66 Year
  Sex: Male
  Weight: 72.56 kg

DRUGS (7)
  1. ATORVASTATIN [Concomitant]
     Active Substance: ATORVASTATIN
  2. PYRIMETHAMINE [Suspect]
     Active Substance: PYRIMETHAMINE
     Indication: EYE INFECTION TOXOPLASMAL
     Dosage: 200 MG, 1X/DAY
     Route: 048
     Dates: start: 20210615, end: 20210615
  3. OMEPRAZOLE. [Concomitant]
     Active Substance: OMEPRAZOLE
  4. PYRIMETHAMINE [Suspect]
     Active Substance: PYRIMETHAMINE
     Dosage: 75 TABLETS, 1X/DAY
     Route: 048
     Dates: start: 20210616
  5. SULFADIAZINE. [Concomitant]
     Active Substance: SULFADIAZINE
  6. LEUCOVORIN. [Concomitant]
     Active Substance: LEUCOVORIN
  7. PROPRANOLOL [Concomitant]
     Active Substance: PROPRANOLOL HYDROCHLORIDE

REACTIONS (2)
  - Loss of consciousness [Not Recovered/Not Resolved]
  - Off label use [Recovered/Resolved]

NARRATIVE: CASE EVENT DATE: 20210615
